FAERS Safety Report 5079170-0 (Version None)
Quarter: 2006Q3

REPORT INFORMATION
  Report Type: 
  Country: None (occurrence: None)
  Receive Date: 20060814
  Receipt Date: 20060726
  Transmission Date: 20061208
  Serious: Yes (Life-Threatening, Other)
  Sender: FDA-Public Use
  Company Number: J200602523

PATIENT
  Age: 83 Year
  Sex: Male
  Weight: 56 kg

DRUGS (18)
  1. CEFAZOLIN [Suspect]
     Indication: TUMOUR EXCISION
     Dosage: 1G PER DAY
     Route: 042
     Dates: start: 20060718, end: 20060718
  2. CHLORHEXIDINE [Concomitant]
     Indication: DRUG USE FOR UNKNOWN INDICATION
     Route: 061
     Dates: start: 20060718, end: 20060718
  3. CARBOCAIN [Concomitant]
     Indication: DRUG USE FOR UNKNOWN INDICATION
     Route: 065
     Dates: start: 20060718, end: 20060718
  4. VECURONIUM BROMIDE [Concomitant]
     Indication: DRUG USE FOR UNKNOWN INDICATION
     Route: 065
     Dates: start: 20060718, end: 20060718
  5. EPIDURAL ANAESTHETIC (UNSPECIFIED) [Concomitant]
     Dates: start: 20060718
  6. DIPRIVAN [Concomitant]
     Indication: ANAESTHESIA
     Route: 065
     Dates: start: 20060718, end: 20060718
  7. FENTANEST [Concomitant]
     Indication: ANAESTHESIA
     Dates: start: 20060718, end: 20060718
  8. SEVOFLURANE [Concomitant]
     Indication: ANAESTHESIA
     Route: 055
     Dates: start: 20060718, end: 20060718
  9. LACTEC [Concomitant]
     Indication: DRUG USE FOR UNKNOWN INDICATION
     Route: 065
     Dates: start: 20060718, end: 20060718
  10. SPIROPENT [Concomitant]
     Indication: DRUG USE FOR UNKNOWN INDICATION
     Route: 048
  11. TERSIGAN [Concomitant]
     Indication: DRUG USE FOR UNKNOWN INDICATION
     Route: 065
  12. UNIPHYL [Concomitant]
     Indication: DRUG USE FOR UNKNOWN INDICATION
     Route: 065
  13. CERCINE [Concomitant]
     Indication: ANAESTHESIA
     Route: 065
  14. PHENYLEPHRINE HYDROCHLORIDE [Concomitant]
     Indication: DRUG USE FOR UNKNOWN INDICATION
     Route: 065
  15. BOSMIN [Concomitant]
     Indication: DRUG USE FOR UNKNOWN INDICATION
     Route: 065
  16. INOVAN [Concomitant]
     Indication: DRUG USE FOR UNKNOWN INDICATION
     Route: 065
  17. MILLISROL (JAPAN) [Concomitant]
     Indication: DRUG USE FOR UNKNOWN INDICATION
     Route: 065
  18. EPIDURAL ANAESTHETIC (UNSPECIFIED) [Concomitant]
     Route: 008

REACTIONS (5)
  - ANAPHYLACTIC SHOCK [None]
  - ARTERIOSPASM CORONARY [None]
  - BLOOD PRESSURE DECREASED [None]
  - ELECTROCARDIOGRAM ST SEGMENT ELEVATION [None]
  - RASH [None]
